FAERS Safety Report 15796277 (Version 1)
Quarter: 2019Q1

REPORT INFORMATION
  Report Type: Spontaneous
  Country: US (occurrence: US)
  Receive Date: 20190108
  Receipt Date: 20190108
  Transmission Date: 20190417
  Serious: Yes (Hospitalization)
  Sender: FDA-Public Use
  Company Number: US-TWI PHARMACEUTICAL, INC-2018SCTW000020

PATIENT

DRUGS (1)
  1. SEVELAMER CARBONATE TABLETS, 800 MG [Suspect]
     Active Substance: SEVELAMER CARBONATE
     Indication: PRODUCT USED FOR UNKNOWN INDICATION
     Dosage: 2400 MG, TID FOR 2 YEARS
     Route: 048

REACTIONS (2)
  - Rectal ulcer [Recovered/Resolved]
  - Haematochezia [Recovered/Resolved]
